FAERS Safety Report 8220210-5 (Version None)
Quarter: 2012Q1

REPORT INFORMATION
  Report Type: 
  Country: None (occurrence: None)
  Receive Date: 20120320
  Receipt Date: 20120313
  Transmission Date: 20120608
  Serious: Yes (Hospitalization)
  Sender: FDA-Public Use
  Company Number: FR-BAYER-2012-024802

PATIENT
  Age: 86 Year
  Sex: Male

DRUGS (8)
  1. RAMIPRIL [Concomitant]
  2. ACARBOSE [Suspect]
     Dosage: 100 MG, UNK
     Route: 048
     Dates: end: 20111001
  3. OLMIFON [Suspect]
     Dosage: UNK
     Route: 048
     Dates: end: 20111001
  4. BROMAZEPAM [Concomitant]
  5. ACETAMINOPHEN AND TRAMADOL HCL [Suspect]
     Route: 048
  6. LANTUS [Suspect]
  7. ASPIRIN [Concomitant]
  8. AMIODARONE HYDROCHLORIDE [Concomitant]

REACTIONS (3)
  - FALL [None]
  - HYPOGLYCAEMIA [None]
  - RHABDOMYOLYSIS [None]
